FAERS Safety Report 6848864-6 (Version None)
Quarter: 2010Q3

REPORT INFORMATION
  Report Type: 
  Country: None (occurrence: None)
  Receive Date: 20100716
  Receipt Date: 20071029
  Transmission Date: 20110219
  Serious: No
  Sender: FDA-Public Use
  Company Number: US-PFIZER INC-2007076291

PATIENT
  Sex: Female
  Weight: 59 kg

DRUGS (9)
  1. CHANTIX [Suspect]
     Indication: SMOKING CESSATION THERAPY
     Dates: start: 20070814
  2. TRICOR [Concomitant]
  3. LANOXIN [Concomitant]
  4. ZETIA [Concomitant]
  5. PLAVIX [Concomitant]
  6. LISINOPRIL [Concomitant]
  7. ASPIRINE [Concomitant]
  8. LIPITOR [Concomitant]
  9. PAXIL [Concomitant]

REACTIONS (1)
  - NAUSEA [None]
